FAERS Safety Report 11353332 (Version 2)
Quarter: 2015Q3

REPORT INFORMATION
  Report Type: Spontaneous
  Country: PT (occurrence: PT)
  Receive Date: 20150807
  Receipt Date: 20150918
  Transmission Date: 20151125
  Serious: Yes (Hospitalization)
  Sender: FDA-Public Use
  Company Number: PT-GLAXOSMITHKLINE-PT2015112337

PATIENT
  Age: 3 Year
  Sex: Female

DRUGS (1)
  1. ZOREF [Suspect]
     Active Substance: CEFUROXIME AXETIL
     Indication: OTITIS MEDIA ACUTE
     Route: 048
     Dates: start: 201304

REACTIONS (3)
  - Rash maculo-papular [Recovered/Resolved]
  - Rash generalised [Recovered/Resolved]
  - Oedema peripheral [Recovered/Resolved]

NARRATIVE: CASE EVENT DATE: 201304
